FAERS Safety Report 25196002 (Version 2)
Quarter: 2025Q3

REPORT INFORMATION
  Report Type: Spontaneous
  Country: JP (occurrence: JP)
  Receive Date: 20250415
  Receipt Date: 20250925
  Transmission Date: 20251021
  Serious: Yes (Hospitalization, Other)
  Sender: VIIV
  Company Number: JP-VIIV HEALTHCARE-JP2025JPN043322

PATIENT
  Sex: Male
  Weight: 56.9 kg

DRUGS (1)
  1. DOVATO [Suspect]
     Active Substance: DOLUTEGRAVIR SODIUM\LAMIVUDINE
     Indication: Acquired immunodeficiency syndrome

REACTIONS (14)
  - Monkeypox [Unknown]
  - Melaena [Unknown]
  - Dermatitis bullous [Unknown]
  - Pyrexia [Unknown]
  - Proctalgia [Recovering/Resolving]
  - Cheilitis [Recovering/Resolving]
  - Rash [Recovering/Resolving]
  - Pustule [Unknown]
  - Eschar [Unknown]
  - Papule [Unknown]
  - Anal blister [Unknown]
  - Proctitis [Unknown]
  - Proctitis bacterial [Unknown]
  - Inflammation [Recovering/Resolving]
